FAERS Safety Report 7153409-X (Version None)
Quarter: 2010Q4

REPORT INFORMATION
  Report Type: 
  Country: None (occurrence: None)
  Receive Date: 20101213
  Receipt Date: 20101129
  Transmission Date: 20110411
  Serious: Yes (Hospitalization)
  Sender: FDA-Public Use
  Company Number: A0865650A

PATIENT
  Age: 67 Year
  Sex: Male

DRUGS (6)
  1. AVANDIA [Suspect]
     Dosage: 8MG PER DAY
     Route: 048
     Dates: start: 19970101, end: 20070101
  2. COZAAR [Concomitant]
  3. LAMISIL [Concomitant]
  4. GLUCOVANCE [Concomitant]
  5. NOVOLOG [Concomitant]
  6. LIPITOR [Concomitant]

REACTIONS (2)
  - CEREBROVASCULAR ACCIDENT [None]
  - TRANSIENT ISCHAEMIC ATTACK [None]
